FAERS Safety Report 7357773-8 (Version None)
Quarter: 2011Q1

REPORT INFORMATION
  Report Type: 
  Country: None (occurrence: None)
  Receive Date: 20110317
  Receipt Date: 20110310
  Transmission Date: 20110831
  Serious: Yes (Hospitalization)
  Sender: FDA-Public Use
  Company Number: BR-US-EMD SERONO, INC.-7047113

PATIENT
  Sex: Female

DRUGS (4)
  1. REBIF [Suspect]
     Indication: RELAPSING-REMITTING MULTIPLE SCLEROSIS
     Dates: start: 20100701
  2. OMEPRAZOLE [Concomitant]
  3. MESTINON [Concomitant]
  4. METHOTREXATE [Concomitant]

REACTIONS (3)
  - CONVULSION [None]
  - SINUSITIS [None]
  - RESPIRATORY ARREST [None]
